FAERS Safety Report 16413626 (Version 4)
Quarter: 2020Q1

REPORT INFORMATION
  Report Type: Report from Study
  Country: CA (occurrence: CA)
  Receive Date: 20190611
  Receipt Date: 20200212
  Transmission Date: 20200409
  Serious: Yes (Other)
  Sender: FDA-Public Use
  Company Number: CA-BRISTOL-MYERS SQUIBB COMPANY-BMS-2019-022377

PATIENT
  Sex: Female

DRUGS (7)
  1. SYNTHROID [Concomitant]
     Active Substance: LEVOTHYROXINE SODIUM
     Indication: PRODUCT USED FOR UNKNOWN INDICATION
     Dosage: UNK
     Route: 065
  2. ABATACEPT [Suspect]
     Active Substance: ABATACEPT
     Indication: PRODUCT USED FOR UNKNOWN INDICATION
     Dosage: 125 MILLIGRAM
     Route: 058
     Dates: start: 20190221
  3. CYCLOBENZAPRINE. [Concomitant]
     Active Substance: CYCLOBENZAPRINE
     Indication: PRODUCT USED FOR UNKNOWN INDICATION
     Dosage: UNK
     Route: 065
  4. TYLENOL [Concomitant]
     Active Substance: ACETAMINOPHEN
     Indication: PRODUCT USED FOR UNKNOWN INDICATION
     Dosage: UNK
     Route: 065
  5. ABATACEPT [Suspect]
     Active Substance: ABATACEPT
     Indication: PSORIATIC ARTHROPATHY
     Dosage: 750 MILLIGRAM
     Route: 042
     Dates: start: 20190221
  6. PANTOPRAZOLE [Concomitant]
     Active Substance: PANTOPRAZOLE
     Indication: PRODUCT USED FOR UNKNOWN INDICATION
     Dosage: UNK
     Route: 065
  7. RIZATRIPTAN. [Concomitant]
     Active Substance: RIZATRIPTAN
     Indication: PRODUCT USED FOR UNKNOWN INDICATION
     Dosage: UNK, PRN
     Route: 065

REACTIONS (17)
  - Fatigue [Recovering/Resolving]
  - Cough [Recovering/Resolving]
  - Nausea [Unknown]
  - Product dose omission [Recovering/Resolving]
  - Dyspepsia [Unknown]
  - Vomiting [Unknown]
  - Hernia [Unknown]
  - Increased upper airway secretion [Recovering/Resolving]
  - Viral infection [Unknown]
  - Headache [Recovering/Resolving]
  - Arthropathy [Unknown]
  - Bronchitis [Unknown]
  - Hypersensitivity [Unknown]
  - Pruritus [Unknown]
  - Pharyngeal leukoplakia [Recovered/Resolved]
  - Neck pain [Unknown]
  - Influenza like illness [Recovering/Resolving]
